FAERS Safety Report 8169098-1 (Version None)
Quarter: 2012Q1

REPORT INFORMATION
  Report Type: 
  Country: None (occurrence: None)
  Receive Date: 20120227
  Receipt Date: 20101001
  Transmission Date: 20120608
  Serious: Yes (Hospitalization, Other)
  Sender: FDA-Public Use
  Company Number: US-ABBOTT-10P-163-0675310-00

PATIENT
  Sex: Female
  Weight: 86 kg

DRUGS (13)
  1. FISH OIL [Concomitant]
     Indication: PRODUCT USED FOR UNKNOWN INDICATION
  2. SYNTHROID [Suspect]
  3. GLUCOPHAGE [Concomitant]
     Indication: DIABETES MELLITUS
  4. ZOCOR [Concomitant]
     Indication: BLOOD CHOLESTEROL INCREASED
     Dosage: 10 MG DAILY
  5. ZOCOR [Concomitant]
     Indication: DYSLIPIDAEMIA
  6. NIACIN [Concomitant]
     Indication: PRODUCT USED FOR UNKNOWN INDICATION
  7. AMARYL [Concomitant]
     Indication: DIABETES MELLITUS
  8. FLU SHOT [Concomitant]
     Indication: PRODUCT USED FOR UNKNOWN INDICATION
     Dates: start: 20100913, end: 20100913
  9. REBIF [Suspect]
     Route: 058
     Dates: start: 20100901
  10. LISINOPRIL [Concomitant]
     Indication: HYPERTENSION
  11. REBIF [Suspect]
     Indication: MULTIPLE SCLEROSIS
     Route: 058
     Dates: start: 20100701
  12. SYNTHROID [Suspect]
     Indication: HYPOTHYROIDISM
     Route: 048
     Dates: start: 20020101, end: 20100901
  13. CELEXA [Concomitant]
     Indication: PRODUCT USED FOR UNKNOWN INDICATION
     Dosage: 10 MG DAILY
     Dates: start: 20100701

REACTIONS (5)
  - MULTIPLE SCLEROSIS [None]
  - DEPRESSED MOOD [None]
  - VENTRICULAR EXTRASYSTOLES [None]
  - THYROID FUNCTION TEST ABNORMAL [None]
  - HEPATIC ENZYME INCREASED [None]
